FAERS Safety Report 15165525 (Version 1)
Quarter: 2018Q3

REPORT INFORMATION
  Report Type: Spontaneous
  Country: US (occurrence: US)
  Receive Date: 20180621
  Receipt Date: 20180621
  Transmission Date: 20181010
  Serious: No
  Sender: FDA-Public Use
  Company Number: None

PATIENT
  Age: 61 Year
  Sex: Female

DRUGS (4)
  1. SYNTHROID 0.137MG [Concomitant]
  2. PROZAC [Concomitant]
     Active Substance: FLUOXETINE HYDROCHLORIDE
  3. ESTRADIOL. [Suspect]
     Active Substance: ESTRADIOL
     Route: 062
     Dates: start: 20180330, end: 20180613
  4. CLORAZEPATE 3.75MG [Concomitant]

REACTIONS (3)
  - Pruritus [None]
  - Product substitution issue [None]
  - Hyperhidrosis [None]

NARRATIVE: CASE EVENT DATE: 20180620
